FAERS Safety Report 21537381 (Version 1)
Quarter: 2022Q4

REPORT INFORMATION
  Report Type: Report from Study
  Country: US (occurrence: US)
  Receive Date: 20221101
  Receipt Date: 20221101
  Transmission Date: 20230113
  Serious: No
  Sender: FDA-Public Use
  Company Number: US-ABBVIE-4148989

PATIENT
  Sex: Female

DRUGS (6)
  1. HUMIRA [Suspect]
     Active Substance: ADALIMUMAB
     Indication: Hidradenitis
     Route: 058
  2. HUMIRA [Suspect]
     Active Substance: ADALIMUMAB
     Indication: Psoriatic arthropathy
  3. HUMIRA [Suspect]
     Active Substance: ADALIMUMAB
     Indication: Psoriatic arthropathy
  4. Pfizer/BioNTech covid-19 vaccination [Concomitant]
     Indication: COVID-19 immunisation
     Dosage: FIRST DOSE, FREQUENCY ONE IN ONCE
     Route: 030
     Dates: start: 20210210, end: 20210210
  5. Pfizer/BioNTech covid-19 vaccination [Concomitant]
     Indication: COVID-19 immunisation
     Dosage: SECOND DOSE, FREQUENCY ONE IN ONCE
     Route: 030
     Dates: start: 20210310, end: 20210310
  6. Pfizer/BioNTech covid-19 vaccination [Concomitant]
     Indication: COVID-19 immunisation
     Dosage: BOOSTER DOSE, THIRD DOSE, FREQUENCY ONE IN ONCE
     Route: 030
     Dates: start: 20210902, end: 20210902

REACTIONS (1)
  - Injection site pruritus [Not Recovered/Not Resolved]
